FAERS Safety Report 10211215 (Version 2)
Quarter: 2014Q2

REPORT INFORMATION
  Report Type: Spontaneous
  Country: DE (occurrence: None)
  Receive Date: 20140528
  Receipt Date: 20140609
  Transmission Date: 20141212
  Serious: Yes (Other)
  Sender: FDA-Public Use
  Company Number: AUR-APL-2014-06091

PATIENT
  Age: 44 Year
  Sex: Male
  Weight: 97 kg

DRUGS (1)
  1. AMOXICILLIN+CLAVULANIC ACID (CLAVULANIC ACID, AMOXICILLIN) [Suspect]
     Indication: SCROTAL ABSCESS
     Dosage: 2X750MG AS DAILY DOSE
     Route: 048
     Dates: start: 20140424, end: 20140428

REACTIONS (1)
  - Hepatitis toxic [None]
